FAERS Safety Report 9786958 (Version 3)
Quarter: 2014Q2

REPORT INFORMATION
  Report Type: Report from Study
  Country: DE (occurrence: DE)
  Receive Date: 20131227
  Receipt Date: 20140407
  Transmission Date: 20141212
  Serious: Yes (Hospitalization)
  Sender: FDA-Public Use
  Company Number: DE-ABBVIE-12P-062-1010148-00

PATIENT
  Age: 68 Year
  Sex: Male

DRUGS (3)
  1. TRENANTONE [Suspect]
     Indication: PROSTATE CANCER
     Route: 058
     Dates: start: 20120320
  2. TRENANTONE [Suspect]
     Indication: PROSTATIC SPECIFIC ANTIGEN INCREASED
  3. VESIKUR [Concomitant]
     Indication: PRODUCT USED FOR UNKNOWN INDICATION

REACTIONS (6)
  - Urethral stenosis [Unknown]
  - Urinary retention [Unknown]
  - Subcutaneous haematoma [Recovered/Resolved]
  - Depression [Not Recovered/Not Resolved]
  - Lumbar vertebral fracture [Unknown]
  - Osteoporosis [Unknown]
